FAERS Safety Report 6933572-3 (Version None)
Quarter: 2010Q3

REPORT INFORMATION
  Report Type: 
  Country: None (occurrence: None)
  Receive Date: 20100820
  Receipt Date: 20100810
  Transmission Date: 20110219
  Serious: Yes (Other)
  Sender: FDA-Public Use
  Company Number: BE-PFIZER INC-2010084436

PATIENT
  Age: 72 Year
  Sex: Male
  Weight: 78 kg

DRUGS (12)
  1. LYRICA [Suspect]
     Indication: MUSCULOSKELETAL PAIN
     Dosage: 300 MG, 2X/DAY
     Route: 048
     Dates: start: 20100622, end: 20100724
  2. LYRICA [Suspect]
     Indication: CERVICOBRACHIAL SYNDROME
  3. LIORESAL ^NOVARTIS^ [Interacting]
     Dosage: 10 MG, 3X/DAY
     Route: 048
     Dates: start: 20100602
  4. CORDARONE [Interacting]
     Dosage: 50 MG, 1X/DAY
     Route: 048
  5. SINTROM [Concomitant]
     Dosage: 1 MG, 1X/DAY
     Route: 048
     Dates: start: 20100218
  6. LIPITOR [Concomitant]
     Dosage: 80 MG, 1X/DAY
     Route: 048
     Dates: start: 20100201
  7. TORISEL [Concomitant]
  8. CIPRALEX [Concomitant]
     Dosage: 10 MG, 1X/DAY
     Dates: start: 20100604
  9. EMCONCOR [Concomitant]
     Dosage: 5 MG, 1X/DAY
     Route: 048
  10. STRUMAZOL [Concomitant]
     Dosage: 10 MG, 1X/DAY
  11. ELTHYRONE [Concomitant]
     Dosage: 0.1 MG, 1X/DAY
     Route: 048
  12. MIACALCIN [Concomitant]
     Dosage: UNK
     Route: 058
     Dates: start: 20100521, end: 20100727

REACTIONS (7)
  - ATAXIA [None]
  - CEREBROVASCULAR ACCIDENT [None]
  - DIPLOPIA [None]
  - DRUG INTERACTION [None]
  - DYSARTHRIA [None]
  - NYSTAGMUS [None]
  - TREMOR [None]
